FAERS Safety Report 23330251 (Version 1)
Quarter: 2023Q4

REPORT INFORMATION
  Report Type: Spontaneous
  Country: CA (occurrence: CA)
  Receive Date: 20231222
  Receipt Date: 20231222
  Transmission Date: 20240109
  Serious: Yes (Hospitalization, Other)
  Sender: FDA-Public Use
  Company Number: CA-009507513-2312CAN008189

PATIENT
  Age: 86 Year
  Sex: Male

DRUGS (1)
  1. CUBICIN [Suspect]
     Active Substance: DAPTOMYCIN
     Dosage: DOSAGE FORM: NOT SPECIFIED, DOSE: 50.0 MILLIGRAM/MILLILITER, ROUTE OF ADMINISTRATION: INTRAVENOUS DR
     Route: 042

REACTIONS (3)
  - Eosinophilic pneumonia [Unknown]
  - Oxygen therapy [Unknown]
  - Respiratory failure [Unknown]
